FAERS Safety Report 15796569 (Version 1)
Quarter: 2019Q1

REPORT INFORMATION
  Report Type: Spontaneous
  Country: DK (occurrence: DK)
  Receive Date: 20190108
  Receipt Date: 20190108
  Transmission Date: 20190417
  Serious: Yes (Death)
  Sender: FDA-Public Use
  Company Number: DK-TEVA-2019-DK-995918

PATIENT
  Age: 52 Year
  Sex: Male

DRUGS (4)
  1. AMLODIPINE [Suspect]
     Active Substance: AMLODIPINE BESYLATE
     Indication: HYPERTENSION
     Dosage: 5 MILLIGRAM DAILY; STYRKE: 5 MG.
     Route: 048
     Dates: start: 20180420
  2. BLOXAZOC [Suspect]
     Active Substance: METOPROLOL SUCCINATE
     Indication: HYPERTENSION
     Dosage: 25 MILLIGRAM DAILY; STYRKE: 25 MG.
     Route: 048
     Dates: start: 20180322, end: 20180326
  3. CORODIL COMP [Suspect]
     Active Substance: ENALAPRIL MALEATE\HYDROCHLOROTHIAZIDE
     Indication: HYPERTENSION
     Dosage: .5 DOSAGE FORMS DAILY; STYRKE: 20 + 12,5 MG.
     Dates: start: 20180309, end: 20180322
  4. CENTYL MED KALIUMKLORID [Suspect]
     Active Substance: BENDROFLUMETHIAZIDE\POTASSIUM CHLORIDE
     Indication: HYPERTENSION
     Dosage: 1 DOSAGE FORMS DAILY; STYRKE: 2,5 + 573 MG.
     Route: 048
     Dates: start: 20180326, end: 20180416

REACTIONS (7)
  - Restlessness [Fatal]
  - Obsessive-compulsive disorder [Fatal]
  - Suicidal ideation [Fatal]
  - Depression [Fatal]
  - Anxiety [Fatal]
  - Suicide attempt [Fatal]
  - Completed suicide [Fatal]

NARRATIVE: CASE EVENT DATE: 2018
